FAERS Safety Report 5803589-0 (Version None)
Quarter: 2008Q3

REPORT INFORMATION
  Report Type: 
  Country: None (occurrence: None)
  Receive Date: 20080703
  Receipt Date: 20080617
  Transmission Date: 20090109
  Serious: Yes (Hospitalization)
  Sender: FDA-Public Use
  Company Number: ERP08000013

PATIENT
  Age: 80 Year
  Sex: Female

DRUGS (2)
  1. ACTONEL [Suspect]
     Indication: OSTEOPOROSIS
     Dosage: 35 MG, 1/WEEK, ORAL
     Route: 048
     Dates: start: 20050601, end: 20070601
  2. CLASTEON(CLODRONATE DISODIUM) [Suspect]
     Indication: OSTEOPOROSIS
     Dosage: 100 MG, 1/WEEK, INTRAMUSCULAR
     Route: 030
     Dates: start: 20050601, end: 20070601

REACTIONS (4)
  - GINGIVAL SWELLING [None]
  - ORAL PAIN [None]
  - OSTEOMYELITIS [None]
  - TOOTH AVULSION [None]
